FAERS Safety Report 12082960 (Version 1)
Quarter: 2016Q1

REPORT INFORMATION
  Report Type: Spontaneous
  Country: US (occurrence: None)
  Receive Date: 20160216
  Receipt Date: 20160216
  Transmission Date: 20160526
  Serious: Yes (Other)
  Sender: FDA-Public Use
  Company Number: None

PATIENT
  Sex: Female

DRUGS (1)
  1. RECAPTURE 360 +IR DEFENSE ANTI-AGING DAY TREATMENT [Suspect]
     Active Substance: TITANIUM DIOXIDE
     Indication: DRY SKIN
     Route: 061
     Dates: start: 201505, end: 201505

REACTIONS (4)
  - Fatigue [None]
  - Application site erythema [None]
  - Product tampering [None]
  - Rash [None]

NARRATIVE: CASE EVENT DATE: 201505
